FAERS Safety Report 6553381-7 (Version None)
Quarter: 2010Q1

REPORT INFORMATION
  Report Type: 
  Country: None (occurrence: None)
  Receive Date: 20100127
  Receipt Date: 20090910
  Transmission Date: 20100710
  Serious: No
  Sender: FDA-Public Use
  Company Number: A0804869A

PATIENT
  Age: 32 Year
  Sex: Male

DRUGS (2)
  1. IMITREX [Suspect]
     Indication: CLUSTER HEADACHE
     Dosage: 6MG TWICE PER DAY
     Route: 058
     Dates: start: 20090810, end: 20090812
  2. VERAPAMIL [Concomitant]
     Dates: start: 20090810

REACTIONS (5)
  - DRUG INEFFECTIVE [None]
  - FEELING ABNORMAL [None]
  - FEELING DRUNK [None]
  - PAIN [None]
  - SINUS DISORDER [None]
